FAERS Safety Report 16045267 (Version 3)
Quarter: 2019Q2

REPORT INFORMATION
  Report Type: Spontaneous
  Country: DE (occurrence: DE)
  Receive Date: 20190307
  Receipt Date: 20190615
  Transmission Date: 20190711
  Serious: Yes (Death, Hospitalization, Other)
  Sender: FDA-Public Use
  Company Number: DE-TEVA-2019-DE-1019659

PATIENT
  Age: 82 Year
  Sex: Male

DRUGS (9)
  1. HYDROCHLOROTHIAZIDE. [Concomitant]
     Active Substance: HYDROCHLOROTHIAZIDE
  2. NAPROXEN. [Suspect]
     Active Substance: NAPROXEN
     Indication: ARTHRITIS
     Dates: start: 20190128, end: 20190129
  3. BISOPROLOL 2.5 MG [Concomitant]
     Active Substance: BISOPROLOL
     Indication: TACHYCARDIA
     Dates: start: 20190112
  4. DIGITOXIN [Concomitant]
     Active Substance: DIGITOXIN
     Indication: TACHYCARDIA
     Dosage: 0.07
  5. TORASEMID 10 MG [Concomitant]
     Active Substance: TORSEMIDE
     Dosage: 10MG PER 8 HRS
  6. RAMIPRIL 5 MG [Suspect]
     Active Substance: RAMIPRIL
     Indication: HYPERTENSION
     Dosage: 10 MILLIGRAM DAILY; DAILY DOSE: 10 MG MILLGRAM(S) EVERY DAYS
     Dates: start: 20190112
  7. XARELTO [Concomitant]
     Active Substance: RIVAROXABAN
     Indication: ATRIAL FIBRILLATION
  8. AMLODIPIN 5 MG [Concomitant]
     Dosage: 5MG PER DAY
  9. RAMILICH COMP [Concomitant]
     Active Substance: HYDROCHLOROTHIAZIDE\RAMIPRIL

REACTIONS (3)
  - Staphylococcal scalded skin syndrome [Fatal]
  - Staphylococcal sepsis [Fatal]
  - Erysipelas [Fatal]
